FAERS Safety Report 6974155-9 (Version None)
Quarter: 2010Q3

REPORT INFORMATION
  Report Type: 
  Country: None (occurrence: None)
  Receive Date: 20100909
  Receipt Date: 20100830
  Transmission Date: 20110219
  Serious: Yes (Hospitalization)
  Sender: FDA-Public Use
  Company Number: IE-ABBOTT-10P-144-0642497-00

PATIENT
  Sex: Female

DRUGS (2)
  1. HUMIRA [Suspect]
     Indication: CROHN'S DISEASE
     Route: 058
     Dates: end: 20091218
  2. HUMIRA [Suspect]
     Dates: end: 20100201

REACTIONS (3)
  - CROHN'S DISEASE [None]
  - FREQUENT BOWEL MOVEMENTS [None]
  - MUCOUS STOOLS [None]
